FAERS Safety Report 6488770-2 (Version None)
Quarter: 2009Q4

REPORT INFORMATION
  Report Type: 
  Country: None (occurrence: None)
  Receive Date: 20091210
  Receipt Date: 20091130
  Transmission Date: 20100525
  Serious: Yes (Hospitalization, Other)
  Sender: FDA-Public Use
  Company Number: PHHY2009CA50545

PATIENT
  Sex: Female

DRUGS (7)
  1. CLOZARIL [Suspect]
     Dosage: 300 MG, QD
     Route: 048
     Dates: start: 20090618, end: 20091109
  2. TYLENOL (CAPLET) [Concomitant]
     Dosage: 1 TABLET (500 MG) TO 2 TABLETS (1000 MG ) PO Q4H PRN
  3. WELLBUTRIN [Concomitant]
     Dosage: 3 TABLETS (450) MG PO DAILY
     Route: 048
  4. PROZAC [Concomitant]
     Dosage: 40 MG/DAY
     Route: 048
  5. DESYREL [Concomitant]
     Dosage: 50 MG DAILY, PRN
  6. RIVOTRIL [Concomitant]
     Dosage: 1 TABLET (0.5) MG DAILY PRN
  7. ATROPINE [Concomitant]
     Indication: SALIVARY HYPERSECRETION
     Dosage: 1 DROP DAILY
     Route: 047

REACTIONS (4)
  - DIZZINESS [None]
  - GAIT DISTURBANCE [None]
  - SCHIZOPHRENIA, DISORGANISED TYPE [None]
  - THINKING ABNORMAL [None]
